FAERS Safety Report 23078181 (Version 2)
Quarter: 2024Q4

REPORT INFORMATION
  Report Type: Spontaneous
  Country: US (occurrence: US)
  Receive Date: 20231018
  Receipt Date: 20241128
  Transmission Date: 20250115
  Serious: Yes (Other)
  Sender: CHATTEM
  Company Number: US-SANOFI-01629228

PATIENT
  Age: 51 Year
  Sex: Male

DRUGS (1)
  1. DULCOLAX (BISACODYL) [Suspect]
     Active Substance: BISACODYL
     Indication: Crohn^s disease
     Dosage: DOSE DESCRIPTION : UNK
     Route: 065

REACTIONS (5)
  - Autonomic neuropathy [Recovering/Resolving]
  - Brain fog [Recovering/Resolving]
  - Listless [Recovering/Resolving]
  - Urticaria [Recovering/Resolving]
  - Rash [Recovering/Resolving]
